FAERS Safety Report 9249759 (Version 1)
Quarter: 2013Q2

REPORT INFORMATION
  Report Type: Spontaneous
  Country: US (occurrence: US)
  Receive Date: 20130423
  Receipt Date: 20130423
  Transmission Date: 20140414
  Serious: No
  Sender: FDA-Public Use
  Company Number: US-B.I. PHARMACEUTICALS,INC./RIDGEFIELD-2013-BI-10360BP

PATIENT
  Sex: Female

DRUGS (5)
  1. ZANTAC 150 (RANITIDINE HYDROCHLORIDE) [Suspect]
     Indication: DYSPEPSIA
     Dosage: 150 MG
     Route: 048
     Dates: start: 20130322
  2. FLONASE [Concomitant]
     Route: 045
  3. LIBRAX [Concomitant]
     Route: 048
  4. ZOLOFT [Concomitant]
     Route: 048
  5. VITAMIN [Concomitant]
     Route: 048

REACTIONS (3)
  - Skin disorder [Not Recovered/Not Resolved]
  - Melanocytic naevus [Not Recovered/Not Resolved]
  - Pruritus generalised [Not Recovered/Not Resolved]
